FAERS Safety Report 8676415 (Version 2)
Quarter: 2012Q4

REPORT INFORMATION
  Report Type: 
  Country: CZ (occurrence: CZ)
  Receive Date: 20120720
  Receipt Date: 20121211
  Transmission Date: 20130627
  Serious: Yes (Other)
  Sender: FDA-Public Use
  Company Number: CZ-UCBSA-061873

PATIENT
  Age: 62 Year
  Sex: Female

DRUGS (9)
  1. CIMZIA [Suspect]
     Indication: RHEUMATOID ARTHRITIS
     Route: 058
     Dates: start: 20120404
  2. PREDNISON [Concomitant]
  3. ARAVA [Concomitant]
     Dosage: STRENGTH: 20 MG
  4. EUTHYROX [Concomitant]
     Dosage: 100 MCG MONDAY TO FRIIDAY, 75 MCG SAT-SUNDAY
  5. SECTRAL [Concomitant]
  6. LORADUR MITE [Concomitant]
     Dosage: 1/2 TBL
  7. DAPRIL [Concomitant]
  8. ALPHA D3 [Concomitant]
     Dosage: DOSE PER INTAKE-1 MCG
  9. MAXI KALZ [Concomitant]

REACTIONS (4)
  - Oral herpes [Recovered/Resolved]
  - Hypersensitivity [Recovered/Resolved]
  - Chills [Recovered/Resolved]
  - Erythema [Recovered/Resolved]
